FAERS Safety Report 9378286 (Version 1)
Quarter: 2013Q3

REPORT INFORMATION
  Report Type: Spontaneous
  Country: CA (occurrence: CA)
  Receive Date: 20130701
  Receipt Date: 20130701
  Transmission Date: 20140515
  Serious: Yes (Hospitalization)
  Sender: FDA-Public Use
  Company Number: CA-B.I. PHARMACEUTICALS,INC./RIDGEFIELD-2013-CN-01154CN

PATIENT
  Age: 86 Year
  Sex: Female
  Weight: 63 kg

DRUGS (8)
  1. PRADAXA [Suspect]
     Dosage: 110 MG
     Route: 048
  2. ASA [Concomitant]
  3. COLCHICINE [Concomitant]
  4. LIPIDIL [Concomitant]
  5. METOPROLOL [Concomitant]
  6. OXYBUTYNIN [Concomitant]
  7. RAMIPRIL [Concomitant]
  8. RANITIDINE [Concomitant]

REACTIONS (4)
  - Blood creatinine increased [Unknown]
  - Creatinine renal clearance decreased [Unknown]
  - Haemoglobin decreased [Unknown]
  - Upper gastrointestinal haemorrhage [Unknown]
